FAERS Safety Report 16045570 (Version 5)
Quarter: 2019Q3

REPORT INFORMATION
  Report Type: Report from Study
  Country: None (occurrence: GB)
  Receive Date: 20190307
  Receipt Date: 20190819
  Transmission Date: 20191004
  Serious: Yes (Hospitalization, Other)
  Sender: FDA-Public Use
  Company Number: GB-ABBVIE-19S-167-2687291-00

PATIENT
  Age: 68 Year
  Sex: Male

DRUGS (1)
  1. DUODOPA [Suspect]
     Active Substance: CARBIDOPA\LEVODOPA
     Indication: PARKINSON^S DISEASE
     Dosage: 100 ML PACK 1.5 CASSETTES PER DAY  5MG/1ML 20MG/1ML
     Route: 050

REACTIONS (10)
  - Chronic myeloid leukaemia [Unknown]
  - Decubitus ulcer [Unknown]
  - Device use issue [Unknown]
  - Pneumonia aspiration [Unknown]
  - Incorrect product administration duration [Recovered/Resolved]
  - Device alarm issue [Unknown]
  - Chest discomfort [Unknown]
  - Device use issue [Unknown]
  - Incorrect product administration duration [Unknown]
  - Somnolence [Unknown]

NARRATIVE: CASE EVENT DATE: 2019
